FAERS Safety Report 5202429-0 (Version None)
Quarter: 2007Q1

REPORT INFORMATION
  Report Type: 
  Country: None (occurrence: None)
  Receive Date: 20070109
  Receipt Date: 20070102
  Transmission Date: 20070707
  Serious: Yes (Disabling)
  Sender: FDA-Public Use
  Company Number: FR-ABBOTT-07P-056-0355106-00

PATIENT
  Age: 80 Year
  Sex: Male

DRUGS (2)
  1. MONOZECLAR [Suspect]
     Indication: NASOPHARYNGITIS
     Route: 048
  2. MONOZECLAR [Suspect]
     Indication: BRONCHITIS

REACTIONS (1)
  - GAIT DISTURBANCE [None]
